FAERS Safety Report 7433509-7 (Version None)
Quarter: 2011Q2

REPORT INFORMATION
  Report Type: 
  Country: None (occurrence: None)
  Receive Date: 20110422
  Receipt Date: 20110324
  Transmission Date: 20111010
  Serious: No
  Sender: FDA-Public Use
  Company Number: US-MUTUAL PHARMACEUTICAL COMPANY, INC.-CLCY20110037

PATIENT
  Sex: Male
  Weight: 112.14 kg

DRUGS (1)
  1. COLCRYS [Suspect]
     Indication: GOUT
     Route: 048
     Dates: start: 20110101, end: 20110322

REACTIONS (6)
  - DIZZINESS [None]
  - DYSGEUSIA [None]
  - PALLOR [None]
  - DIARRHOEA [None]
  - POLLAKIURIA [None]
  - FATIGUE [None]
